FAERS Safety Report 9191715 (Version 1)
Quarter: 2013Q1

REPORT INFORMATION
  Report Type: Spontaneous
  Country: GB (occurrence: GB)
  Receive Date: 20130326
  Receipt Date: 20130326
  Transmission Date: 20140127
  Serious: Yes (Other)
  Sender: FDA-Public Use
  Company Number: GB-009507513-1303GBR011828

PATIENT
  Age: 70 Year
  Sex: Male

DRUGS (8)
  1. NITRO-DUR [Suspect]
     Route: 062
  2. DICYCLOMINE HYDROCHLORIDE [Suspect]
     Indication: MUSCLE SPASMS
     Dosage: 10 MG, QD
     Route: 048
  3. AMLODIPINE [Concomitant]
  4. ATENOLOL [Concomitant]
  5. ISOSORBIDE MONONITRATE [Concomitant]
  6. LIPITOR [Concomitant]
  7. RAMIPRIL [Concomitant]
  8. MORPHINE [Concomitant]

REACTIONS (1)
  - Hiatus hernia [Unknown]
